FAERS Safety Report 11415830 (Version 1)
Quarter: 2015Q3

REPORT INFORMATION
  Report Type: Spontaneous
  Country: US (occurrence: None)
  Receive Date: 20150824
  Receipt Date: 20150824
  Transmission Date: 20151125
  Serious: No
  Sender: FDA-Public Use
  Company Number: None

PATIENT
  Age: 27 Year
  Sex: Female
  Weight: 52.16 kg

DRUGS (4)
  1. FLUCONAZOLE GENERIC FOR DIFLUCAN [Concomitant]
  2. TEA [Concomitant]
     Active Substance: TEA LEAF
  3. AZITHROMYCIN [Suspect]
     Active Substance: AZITHROMYCIN ANHYDROUS
     Indication: CHLAMYDIAL INFECTION
     Dosage: 2 PILLS
     Route: 048
     Dates: start: 20150821, end: 20150821
  4. METRONIDAZOLE GENERIC FOR FLAGYL [Concomitant]

REACTIONS (7)
  - Throat tightness [None]
  - Abdominal discomfort [None]
  - Diarrhoea [None]
  - Headache [None]
  - Oropharyngeal pain [None]
  - Dysphagia [None]
  - Pain [None]

NARRATIVE: CASE EVENT DATE: 20150821
